FAERS Safety Report 7364027-2 (Version None)
Quarter: 2011Q1

REPORT INFORMATION
  Report Type: 
  Country: None (occurrence: None)
  Receive Date: 20110321
  Receipt Date: 20110314
  Transmission Date: 20110831
  Serious: Yes (Hospitalization)
  Sender: FDA-Public Use
  Company Number: DE-SANOFI-AVENTIS-2011SA007192

PATIENT
  Age: 61 Year
  Sex: Female
  Weight: 80 kg

DRUGS (16)
  1. TAXOTERE [Suspect]
     Route: 041
     Dates: start: 20100729, end: 20100729
  2. I.V. SOLUTIONS [Concomitant]
     Indication: PROPHYLAXIS
     Route: 042
     Dates: start: 20100101
  3. OXALIPLATIN [Suspect]
     Route: 041
     Dates: start: 20100729, end: 20100729
  4. FLUOROURACIL [Suspect]
     Route: 041
     Dates: start: 20100729, end: 20100729
  5. CORTICOSTEROIDS [Concomitant]
     Indication: PROPHYLAXIS
     Route: 065
     Dates: start: 20100101
  6. TAXOTERE [Suspect]
     Route: 041
     Dates: start: 20110202, end: 20110202
  7. OXALIPLATIN [Suspect]
     Route: 041
     Dates: start: 20110202, end: 20110202
  8. CALCIUM [Concomitant]
     Dosage: 1-1-1-0
  9. OMEPRAZOLE [Concomitant]
     Dosage: 1-0-1-0
  10. ANTIHISTAMINES [Concomitant]
     Indication: PROPHYLAXIS
     Route: 065
     Dates: start: 20100101
  11. FLUOROURACIL [Suspect]
     Route: 041
     Dates: start: 20110202, end: 20110202
  12. JODTHYROX [Concomitant]
     Dosage: 1-0-0-0
     Route: 048
  13. ROCALTROL [Concomitant]
     Dosage: 1-1-0-0
  14. METOCLOPRAMIDE [Concomitant]
  15. LOPERAMIDE [Concomitant]
  16. ANTIEMETICS AND ANTINAUSEANTS [Concomitant]
     Indication: PROPHYLAXIS
     Route: 065
     Dates: start: 20100101

REACTIONS (4)
  - PYREXIA [None]
  - CYTOKINE RELEASE SYNDROME [None]
  - CHILLS [None]
  - TACHYCARDIA [None]
